FAERS Safety Report 6538543-7 (Version None)
Quarter: 2010Q1

REPORT INFORMATION
  Report Type: 
  Country: None (occurrence: None)
  Receive Date: 20100113
  Receipt Date: 20100113
  Transmission Date: 20100710
  Serious: Yes (Disabling, Other)
  Sender: FDA-Public Use
  Company Number: None

PATIENT
  Sex: Male
  Weight: 100 kg

DRUGS (1)
  1. VIAGRA [Suspect]
     Indication: ERECTILE DYSFUNCTION
     Dates: start: 20060101, end: 20090101

REACTIONS (8)
  - ANXIETY [None]
  - BLINDNESS UNILATERAL [None]
  - DEPRESSION [None]
  - ECONOMIC PROBLEM [None]
  - IMPAIRED WORK ABILITY [None]
  - INTRAOCULAR PRESSURE INCREASED [None]
  - RETINAL VASCULAR DISORDER [None]
  - VISUAL ACUITY REDUCED [None]
